FAERS Safety Report 13696848 (Version 2)
Quarter: 2017Q4

REPORT INFORMATION
  Report Type: Spontaneous
  Country: US (occurrence: US)
  Receive Date: 20170628
  Receipt Date: 20171128
  Transmission Date: 20180320
  Serious: Yes (Other)
  Sender: FDA-Public Use
  Company Number: US-ASTRAZENECA-2017SE65253

PATIENT
  Age: 23640 Day
  Sex: Female

DRUGS (24)
  1. PRILOSEC [Suspect]
     Active Substance: OMEPRAZOLE MAGNESIUM
     Indication: GASTRIC PH DECREASED
     Route: 048
     Dates: start: 1995, end: 2016
  2. LANSOPRAZOLE. [Suspect]
     Active Substance: LANSOPRAZOLE
     Indication: GASTRIC PH DECREASED
     Route: 065
     Dates: start: 1995, end: 2016
  3. PREDNISONE. [Concomitant]
     Active Substance: PREDNISONE
  4. EPOGEN [Concomitant]
     Active Substance: ERYTHROPOIETIN
  5. MONTELUKAST [Concomitant]
     Active Substance: MONTELUKAST SODIUM
  6. SEVELAMER [Concomitant]
     Active Substance: SEVELAMER
  7. ZOLOFT [Concomitant]
     Active Substance: SERTRALINE HYDROCHLORIDE
  8. CARVEDILOL. [Concomitant]
     Active Substance: CARVEDILOL
  9. RANITIDINE. [Concomitant]
     Active Substance: RANITIDINE
  10. HECTOROL [Concomitant]
     Active Substance: DOXERCALCIFEROL
  11. ASPIRIN. [Concomitant]
     Active Substance: ASPIRIN
  12. WELLBUTRIN [Concomitant]
     Active Substance: BUPROPION HYDROCHLORIDE
  13. PHOSLO [Concomitant]
     Active Substance: CALCIUM ACETATE
  14. SYNTHROID [Concomitant]
     Active Substance: LEVOTHYROXINE SODIUM
  15. NITROGLYCERIN. [Concomitant]
     Active Substance: NITROGLYCERIN
  16. MOBIC [Concomitant]
     Active Substance: MELOXICAM
  17. VENOFER [Concomitant]
     Active Substance: IRON SUCROSE
  18. CARVEDILOL. [Concomitant]
     Active Substance: CARVEDILOL
  19. DIPHENHYDRAMINE. [Concomitant]
     Active Substance: DIPHENHYDRAMINE
  20. BACTRIM [Concomitant]
     Active Substance: SULFAMETHOXAZOLE\TRIMETHOPRIM
  21. RENVELA [Concomitant]
     Active Substance: SEVELAMER CARBONATE
  22. LISINOPRIL. [Concomitant]
     Active Substance: LISINOPRIL
  23. PRILOSEC [Suspect]
     Active Substance: OMEPRAZOLE MAGNESIUM
     Indication: GASTRIC PH DECREASED
     Route: 048
     Dates: start: 20150705
  24. HYDROCODONE [Concomitant]
     Active Substance: HYDROCODONE

REACTIONS (7)
  - Acute kidney injury [Unknown]
  - Pulmonary renal syndrome [Unknown]
  - Nephrogenic anaemia [Unknown]
  - End stage renal disease [Unknown]
  - Chronic kidney disease [Unknown]
  - Renal failure [Unknown]
  - Tubulointerstitial nephritis [Unknown]

NARRATIVE: CASE EVENT DATE: 20150525
